FAERS Safety Report 22149882 (Version 2)
Quarter: 2023Q2

REPORT INFORMATION
  Report Type: Spontaneous
  Country: US (occurrence: US)
  Receive Date: 20230329
  Receipt Date: 20230406
  Transmission Date: 20230722
  Serious: Yes (Other)
  Sender: FDA-Public Use
  Company Number: US-COLGATE PALMOLIVE COMPANY-20230300515

PATIENT
  Age: 68 Year
  Sex: Female

DRUGS (1)
  1. COLGATE CAVITY PROTECTION [Suspect]
     Active Substance: SODIUM FLUORIDE
     Dosage: COVERS WHOLE TOOTHBRUSH, USES 2X MAX
     Dates: start: 20230316, end: 20230317

REACTIONS (2)
  - Expired product administered [Unknown]
  - Dermatitis contact [Not Recovered/Not Resolved]

NARRATIVE: CASE EVENT DATE: 20230301
